FAERS Safety Report 13932374 (Version 1)
Quarter: 2017Q3

REPORT INFORMATION
  Report Type: Spontaneous
  Country: PT (occurrence: PT)
  Receive Date: 20170904
  Receipt Date: 20170904
  Transmission Date: 20171127
  Serious: Yes (Hospitalization)
  Sender: FDA-Public Use
  Company Number: PT-ROCHE-1986942

PATIENT
  Age: 70 Year
  Sex: Female

DRUGS (8)
  1. DIAZEPAM. [Suspect]
     Active Substance: DIAZEPAM
     Indication: ANTIDEPRESSANT THERAPY
     Route: 065
  2. VENLAFAXINE [Suspect]
     Active Substance: VENLAFAXINE HYDROCHLORIDE
     Indication: ANTIDEPRESSANT THERAPY
     Route: 065
  3. DULOXETINE. [Suspect]
     Active Substance: DULOXETINE
     Indication: ANTIDEPRESSANT THERAPY
     Route: 065
  4. BROMAZEPAM [Suspect]
     Active Substance: BROMAZEPAM
     Indication: ANTIDEPRESSANT THERAPY
     Route: 065
  5. LORAZEPAM. [Suspect]
     Active Substance: LORAZEPAM
     Indication: ANTIDEPRESSANT THERAPY
     Route: 065
  6. TRIHEXYPHENIDYL [Concomitant]
     Active Substance: TRIHEXYPHENIDYL
     Route: 065
  7. CLOMIPRAMINE [Suspect]
     Active Substance: CLOMIPRAMINE
     Indication: ANTIDEPRESSANT THERAPY
     Route: 065
  8. VALPROIC ACID. [Concomitant]
     Active Substance: VALPROIC ACID
     Route: 065

REACTIONS (7)
  - Hypernatraemia [Unknown]
  - Hyperchloraemia [Unknown]
  - Overdose [Unknown]
  - Immunology test abnormal [Unknown]
  - Acute kidney injury [Unknown]
  - Respiratory depression [Unknown]
  - Coma [Unknown]
